FAERS Safety Report 7664784-1 (Version None)
Quarter: 2011Q3

REPORT INFORMATION
  Report Type: 
  Country: None (occurrence: None)
  Receive Date: 20110806
  Receipt Date: 20110127
  Transmission Date: 20111222
  Serious: No
  Sender: FDA-Public Use
  Company Number: US-ABBOTT-11P-163-0701199-00

PATIENT
  Sex: Male
  Weight: 113.95 kg

DRUGS (7)
  1. NIASPAN [Suspect]
     Dosage: 1000 MG DAILY DOSE
     Dates: start: 20101201, end: 20110101
  2. CRESTOR [Concomitant]
     Indication: BLOOD CHOLESTEROL INCREASED
  3. PLAVIX [Concomitant]
     Indication: PRODUCT USED FOR UNKNOWN INDICATION
  4. AMARYL [Concomitant]
     Indication: DIABETES MELLITUS
  5. METFORMIN HCL [Concomitant]
     Indication: DIABETES MELLITUS
  6. NIASPAN [Suspect]
     Indication: BLOOD CHOLESTEROL INCREASED
     Dosage: 1500 MG DAILY DOSE
     Dates: start: 20110101
  7. NIASPAN [Suspect]
     Dosage: 500 MG DAILY DOSE
     Dates: start: 20101101, end: 20101201

REACTIONS (1)
  - PRURITUS [None]
